FAERS Safety Report 5140564-6 (Version None)
Quarter: 2006Q4

REPORT INFORMATION
  Report Type: 
  Country: None (occurrence: None)
  Receive Date: 20061019
  Receipt Date: 20061010
  Transmission Date: 20070319
  Serious: Yes (Hospitalization)
  Sender: FDA-Public Use
  Company Number: 200610758

PATIENT
  Age: 65 Year
  Sex: Male
  Weight: 90.7194 kg

DRUGS (3)
  1. VIVAGLOBIN (ZLB BEHRING) [Suspect]
     Indication: PRIMARY IMMUNODEFICIENCY SYNDROME
     Dosage: 12.8 G Q1W SC
     Route: 058
     Dates: start: 20060901
  2. SINGULAIR [Concomitant]
  3. OMEPRAZOLE [Concomitant]

REACTIONS (1)
  - PULMONARY EOSINOPHILIA [None]
